FAERS Safety Report 10218039 (Version 1)
Quarter: 2014Q2

REPORT INFORMATION
  Report Type: Spontaneous
  Country: US (occurrence: US)
  Receive Date: 20140605
  Receipt Date: 20140605
  Transmission Date: 20141212
  Serious: No
  Sender: FDA-Public Use
  Company Number: US-BIOGENIDEC-2014BI046934

PATIENT
  Age: 47 Year
  Sex: Female

DRUGS (15)
  1. TECFIDERA [Suspect]
     Indication: MULTIPLE SCLEROSIS
     Route: 048
     Dates: start: 20140403
  2. B12-ACTIVE [Concomitant]
  3. CYCLOBENZAPRINE HCL [Concomitant]
  4. DIOVAN HCL [Concomitant]
  5. FISH OIL [Concomitant]
  6. GABAPENTIN [Concomitant]
  7. HYDROCHLOROTHIAZIDE [Concomitant]
  8. IRON [Concomitant]
  9. KLOR-CON 10 [Concomitant]
  10. LABETALOL HCL [Concomitant]
  11. NAPROXEN [Concomitant]
  12. NORVASC [Concomitant]
  13. PROBIOTIC [Concomitant]
  14. TRAMADOL HCL ER (BIPHASIC) [Concomitant]
  15. VITAMIN D [Concomitant]

REACTIONS (3)
  - Dysgeusia [Not Recovered/Not Resolved]
  - Dyspepsia [Not Recovered/Not Resolved]
  - Nausea [Not Recovered/Not Resolved]
